FAERS Safety Report 18410438 (Version 4)
Quarter: 2023Q4

REPORT INFORMATION
  Report Type: Spontaneous
  Country: US (occurrence: US)
  Receive Date: 20201021
  Receipt Date: 20231031
  Transmission Date: 20240110
  Serious: Yes (Other)
  Sender: FDA-Public Use
  Company Number: US-GILEAD-2020-0499304

PATIENT
  Age: 53 Year
  Sex: Male
  Weight: 95.3 kg

DRUGS (44)
  1. COMPLERA [Suspect]
     Active Substance: EMTRICITABINE\RILPIVIRINE HYDROCHLORIDE\TENOFOVIR DISOPROXIL FUMARATE
     Indication: HIV infection
     Dosage: UNK
     Route: 048
     Dates: start: 2012
  2. COMPLERA [Suspect]
     Active Substance: EMTRICITABINE\RILPIVIRINE HYDROCHLORIDE\TENOFOVIR DISOPROXIL FUMARATE
     Dosage: UNK
     Route: 048
     Dates: start: 201502, end: 202101
  3. COMPLERA [Suspect]
     Active Substance: EMTRICITABINE\RILPIVIRINE HYDROCHLORIDE\TENOFOVIR DISOPROXIL FUMARATE
     Dosage: UNK
     Route: 048
     Dates: start: 2012, end: 202101
  4. PREZCOBIX [Concomitant]
     Active Substance: COBICISTAT\DARUNAVIR ETHANOLATE
     Indication: HIV infection
  5. TIVICAY [Concomitant]
     Active Substance: DOLUTEGRAVIR SODIUM
     Indication: HIV infection
  6. ABILIFY [Concomitant]
     Active Substance: ARIPIPRAZOLE
  7. AMITIZA [Concomitant]
     Active Substance: LUBIPROSTONE
  8. AMLODIPINE [Concomitant]
     Active Substance: AMLODIPINE BESYLATE
  9. AMOX+CLAV [Concomitant]
  10. AMOXICILLIN [Concomitant]
     Active Substance: AMOXICILLIN
  11. ARIPIPRAZOLE [Concomitant]
     Active Substance: ARIPIPRAZOLE
  12. ASPIRIN [Concomitant]
     Active Substance: ASPIRIN
  13. AZITHROMYCIN [Concomitant]
     Active Substance: AZITHROMYCIN
  14. BETAMETHASONE [Concomitant]
     Active Substance: BETAMETHASONE
  15. CEPHALEXIN [Concomitant]
     Active Substance: CEPHALEXIN
  16. CIPROFLOXACIN [Concomitant]
     Active Substance: CIPROFLOXACIN
  17. CIALIS [Concomitant]
     Active Substance: TADALAFIL
  18. CLARITHROMYCIN [Concomitant]
     Active Substance: CLARITHROMYCIN
  19. CLOTRIMAZOLE [Concomitant]
     Active Substance: CLOTRIMAZOLE
  20. COLACE [Concomitant]
     Active Substance: DOCUSATE SODIUM
  21. DEXAMETHASONE [Concomitant]
     Active Substance: DEXAMETHASONE
  22. DYAZIDE [Concomitant]
     Active Substance: HYDROCHLOROTHIAZIDE\TRIAMTERENE
  23. HYDROCODONE [Concomitant]
     Active Substance: HYDROCODONE
  24. KRISTALOSE [Concomitant]
     Active Substance: LACTULOSE
  25. LAMICTAL [Concomitant]
     Active Substance: LAMOTRIGINE
  26. LAMOTRIGINE [Concomitant]
     Active Substance: LAMOTRIGINE
  27. LINZESS [Concomitant]
     Active Substance: LINACLOTIDE
  28. METHYLPREDNISOLONE [Concomitant]
     Active Substance: METHYLPREDNISOLONE
  29. METOPROLOL [Concomitant]
     Active Substance: METOPROLOL
  30. METRONIDAZOLE [Concomitant]
     Active Substance: METRONIDAZOLE
  31. MIRTAZAPINE [Concomitant]
     Active Substance: MIRTAZAPINE
  32. NORVASC [Concomitant]
     Active Substance: AMLODIPINE BESYLATE
  33. ONDANSETRON [Concomitant]
     Active Substance: ONDANSETRON
  34. OXYCODONE [Concomitant]
     Active Substance: OXYCODONE
  35. PANTOPRAZOLE [Concomitant]
     Active Substance: PANTOPRAZOLE
  36. POTASIUM [Concomitant]
  37. REMERON [Concomitant]
     Active Substance: MIRTAZAPINE
  38. SUPREP BOWEL [Concomitant]
  39. TADALAFIL [Concomitant]
     Active Substance: TADALAFIL
  40. TAMSULOSIN [Concomitant]
     Active Substance: TAMSULOSIN
  41. TRAMADOL [Concomitant]
     Active Substance: TRAMADOL\TRAMADOL HYDROCHLORIDE
  42. TRIAMTERENE [Concomitant]
     Active Substance: TRIAMTERENE
  43. TRULANCE [Concomitant]
     Active Substance: PLECANATIDE
  44. AMLODIPINE BESYLATE [Concomitant]
     Active Substance: AMLODIPINE BESYLATE

REACTIONS (12)
  - Helicobacter infection [Unknown]
  - Osteopenia [Not Recovered/Not Resolved]
  - Pain [Unknown]
  - Emotional distress [Unknown]
  - Anxiety [Unknown]
  - Anhedonia [Unknown]
  - Drug resistance [Unknown]
  - Fatigue [Unknown]
  - Renal disorder [Unknown]
  - Bone pain [Unknown]
  - Dysstasia [Unknown]
  - Mobility decreased [Unknown]

NARRATIVE: CASE EVENT DATE: 20181101
